FAERS Safety Report 4964466-0 (Version None)
Quarter: 2006Q2

REPORT INFORMATION
  Report Type: 
  Country: None (occurrence: None)
  Receive Date: 20060406
  Receipt Date: 20060301
  Transmission Date: 20061013
  Serious: Yes (Hospitalization)
  Sender: FDA-Public Use
  Company Number: HQWYE138103MAR06

PATIENT
  Sex: Male

DRUGS (11)
  1. ENBREL [Suspect]
     Indication: RHEUMATOID ARTHRITIS
     Route: 058
     Dates: start: 20060221, end: 20060224
  2. MIZORIBINE [Concomitant]
     Route: 065
     Dates: start: 19990329, end: 20060223
  3. SULFASALAZINE [Concomitant]
     Route: 065
     Dates: start: 20050713, end: 20060301
  4. PREDNISOLONE [Concomitant]
     Route: 065
     Dates: start: 20060131
  5. FAMOTIDINE [Concomitant]
     Route: 065
     Dates: start: 20060113
  6. BENZBROMARONE [Concomitant]
     Route: 065
     Dates: start: 19991101
  7. RISEDRONIC ACID [Concomitant]
     Route: 065
     Dates: start: 20060210
  8. EURODIN [Concomitant]
     Route: 065
     Dates: start: 20060213
  9. DIGOXIN [Concomitant]
     Route: 065
     Dates: start: 20060127
  10. VERAPAMIL HYDROCHLORIDE [Concomitant]
     Route: 065
     Dates: start: 20060127
  11. UNSPECIFIED MEDICATION [Concomitant]
     Route: 065
     Dates: start: 20060221

REACTIONS (1)
  - INTERSTITIAL LUNG DISEASE [None]
